FAERS Safety Report 8438226 (Version 2)
Quarter: 2014Q1

REPORT INFORMATION
  Report Type: Spontaneous
  Country: US (occurrence: US)
  Receive Date: 20120302
  Receipt Date: 20140120
  Transmission Date: 20141002
  Serious: Yes (Death, Hospitalization)
  Sender: FDA-Public Use
  Company Number: US-GLAXOSMITHKLINE-A0932375A

PATIENT
  Age: 73 Year
  Sex: Male
  Weight: 111.4 kg

DRUGS (1)
  1. AVANDIA [Suspect]
     Indication: DIABETES MELLITUS
     Dosage: 8MG PER DAY
     Route: 048
     Dates: start: 199911, end: 200809

REACTIONS (8)
  - Pneumonia klebsiella [Fatal]
  - Cardiovascular disorder [Unknown]
  - Coronary artery disease [Unknown]
  - Amnesia [Unknown]
  - Vascular graft [Unknown]
  - Cardiac failure congestive [Unknown]
  - Cardiac disorder [Unknown]
  - Atrial fibrillation [Unknown]
